FAERS Safety Report 12883143 (Version 1)
Quarter: 2016Q4

REPORT INFORMATION
  Report Type: Spontaneous
  Country: IT (occurrence: IT)
  Receive Date: 20161025
  Receipt Date: 20161025
  Transmission Date: 20170207
  Serious: Yes (Hospitalization)
  Sender: FDA-Public Use
  Company Number: IT-TELIGENT, INC-IGIL20160290

PATIENT
  Age: 29 Year
  Sex: Female

DRUGS (3)
  1. ORUDIS [Suspect]
     Active Substance: KETOPROFEN
     Indication: RENAL COLIC
     Route: 065
     Dates: start: 20160921, end: 20160921
  2. ZANTAC [Suspect]
     Active Substance: RANITIDINE HYDROCHLORIDE
     Indication: PROPHYLAXIS AGAINST GASTROINTESTINAL ULCER
     Route: 042
     Dates: start: 20160921, end: 20160921
  3. SPASMEX [Suspect]
     Active Substance: TROSPIUM CHLORIDE
     Indication: RENAL COLIC
     Route: 065
     Dates: start: 20160921, end: 20160921

REACTIONS (2)
  - Pruritus [Recovering/Resolving]
  - Rash papular [Recovering/Resolving]

NARRATIVE: CASE EVENT DATE: 20160921
